FAERS Safety Report 7272816-8 (Version None)
Quarter: 2011Q1

REPORT INFORMATION
  Report Type: 
  Country: None (occurrence: None)
  Receive Date: 20110203
  Receipt Date: 20110121
  Transmission Date: 20110831
  Serious: Yes (Hospitalization, Other)
  Sender: FDA-Public Use
  Company Number: PHHO2006BR20403

PATIENT
  Age: 51 Year
  Sex: Female
  Weight: 94 kg

DRUGS (13)
  1. SELOPRES [Concomitant]
     Indication: HYPERTENSION
     Dosage: ONCE/DAY
  2. OMEPRAZOLE [Concomitant]
     Indication: GASTRITIS
     Dosage: ONCE/DAY
     Route: 048
  3. CODATEN [Suspect]
     Indication: PAIN
     Dates: end: 20080209
  4. ZELMAC [Suspect]
  5. GABAPENTIN [Concomitant]
     Indication: PAIN
     Dosage: ONCE/DAY
     Route: 048
  6. FORASEQ [Suspect]
     Indication: ASTHMA
     Dosage: 12 FORM/400  BUDE MCG
  7. DIOVAN [Suspect]
     Indication: HYPERTENSION
     Dosage: UNK, QD
     Route: 048
  8. LIORESAL [Concomitant]
     Dosage: ONCE/DAY
     Route: 048
  9. DIMORF [Concomitant]
     Dates: end: 20080209
  10. TRAMAL [Concomitant]
     Indication: PAIN
     Dosage: UNK, BID
     Route: 048
  11. LIORESAL [Concomitant]
     Indication: PAIN
     Dosage: ONCE/DAY
     Route: 048
  12. DIMORF [Concomitant]
     Indication: PAIN
     Dates: end: 20080209
  13. DALMADORM [Concomitant]
     Indication: INSOMNIA
     Dosage: ONCE/DAY
     Route: 048

REACTIONS (15)
  - CERVICAL VERTEBRAL FRACTURE [None]
  - INTERVERTEBRAL DISC PROTRUSION [None]
  - VIRAL INFECTION [None]
  - BACK PAIN [None]
  - PAIN [None]
  - HIATUS HERNIA [None]
  - HYPERTENSION [None]
  - GASTRITIS [None]
  - ASTHMATIC CRISIS [None]
  - FALL [None]
  - ABDOMINAL PAIN UPPER [None]
  - REFLUX GASTRITIS [None]
  - GASTRIC HAEMORRHAGE [None]
  - DYSPEPSIA [None]
  - BURSITIS [None]
